FAERS Safety Report 9454303 (Version 1)
Quarter: 2013Q3

REPORT INFORMATION
  Report Type: Spontaneous
  Country: US (occurrence: None)
  Receive Date: 20130809
  Receipt Date: 20130809
  Transmission Date: 20140515
  Serious: No
  Sender: FDA-Public Use
  Company Number: None

PATIENT
  Age: 49 Year
  Sex: Female
  Weight: 58.97 kg

DRUGS (1)
  1. METRONIDAZOLE [Suspect]
     Indication: CLOSTRIDIUM DIFFICILE INFECTION
     Dosage: 1 TABLET THREE TIMES DAILY TAKEN BY MOUTH
     Route: 048
     Dates: start: 20130805, end: 20130806

REACTIONS (3)
  - Paraesthesia [None]
  - Paraesthesia [None]
  - Paraesthesia [None]
